FAERS Safety Report 17464566 (Version 4)
Quarter: 2021Q1

REPORT INFORMATION
  Report Type: Report from Study
  Country: US (occurrence: US)
  Receive Date: 20200226
  Receipt Date: 20210331
  Transmission Date: 20210419
  Serious: Yes (Other)
  Sender: FDA-Public Use
  Company Number: NVSC2020US048276

PATIENT
  Sex: Male

DRUGS (1)
  1. COSENTYX [Suspect]
     Active Substance: SECUKINUMAB
     Indication: PSORIATIC ARTHROPATHY
     Dosage: 300 MG. EVERY 4 WEEKS
     Route: 058

REACTIONS (6)
  - Psoriatic arthropathy [Unknown]
  - Dandruff [Unknown]
  - Skin lesion [Unknown]
  - Sepsis [Unknown]
  - Product dose omission issue [Unknown]
  - Psoriasis [Unknown]
